FAERS Safety Report 8906013 (Version 1)
Quarter: 2012Q4

REPORT INFORMATION
  Report Type: 
  Country: BE (occurrence: BE)
  Receive Date: 20121109
  Receipt Date: 20121109
  Transmission Date: 20130627
  Serious: Yes (Other)
  Sender: FDA-Public Use
  Company Number: BE-VIIV HEALTHCARE LIMITED-B0841482A

PATIENT
  Age: 60 Year
  Sex: Male

DRUGS (9)
  1. LAMIVUDINE-HIV [Suspect]
     Indication: HIV INFECTION
     Route: 065
  2. ZIDOVUDINE [Suspect]
     Indication: HIV INFECTION
     Route: 065
  3. SALMETEROL XINAFOATE + FLUTICASONE PROPIONATE [Suspect]
     Indication: CHRONIC OBSTRUCTIVE PULMONARY DISEASE
     Dosage: 500MCG Twice per day
     Route: 055
  4. NELFINAVIR [Suspect]
     Indication: HIV INFECTION
     Route: 065
  5. SAQUINAVIR [Suspect]
     Indication: HIV INFECTION
     Route: 065
  6. ATAZANAVIR [Suspect]
     Indication: HIV INFECTION
     Route: 065
  7. TENOFOVIR [Suspect]
     Indication: HIV INFECTION
     Route: 065
  8. RITONAVIR [Suspect]
     Indication: HIV INFECTION
     Route: 065
  9. EMTRICITABINE [Suspect]
     Indication: HIV INFECTION
     Route: 065

REACTIONS (9)
  - Cushing^s syndrome [Recovered/Resolved]
  - Gynaecomastia [Unknown]
  - Face oedema [Unknown]
  - Herpes simplex [Unknown]
  - Diarrhoea [Unknown]
  - Blood cortisol decreased [Unknown]
  - Skin atrophy [Unknown]
  - Blood corticotrophin abnormal [Unknown]
  - Drug interaction [Unknown]
